FAERS Safety Report 10036147 (Version 1)
Quarter: 2014Q1

REPORT INFORMATION
  Report Type: Spontaneous
  Country: US (occurrence: US)
  Receive Date: 20140325
  Receipt Date: 20140325
  Transmission Date: 20141002
  Serious: Yes (Other)
  Sender: FDA-Public Use
  Company Number: US-TEVA-470555USA

PATIENT
  Sex: Female

DRUGS (2)
  1. COPAXONE [Suspect]
     Indication: MULTIPLE SCLEROSIS
     Dates: end: 2013
  2. COPAXONE [Suspect]
     Dates: start: 201312

REACTIONS (2)
  - Crohn^s disease [Unknown]
  - Multiple sclerosis relapse [Recovered/Resolved]
